FAERS Safety Report 7131168-4 (Version None)
Quarter: 2010Q4

REPORT INFORMATION
  Report Type: 
  Country: None (occurrence: None)
  Receive Date: 20101124
  Receipt Date: 20101124
  Transmission Date: 20110411
  Serious: Yes (Other)
  Sender: FDA-Public Use
  Company Number: None

PATIENT
  Sex: Male
  Weight: 63.5036 kg

DRUGS (1)
  1. DIVALPROEX EXTENDED-RELEASE [Suspect]
     Indication: BIPOLAR DISORDER
     Dosage: 500MG 2 PILLS DAY @ NITE
     Dates: end: 20101015

REACTIONS (3)
  - COUNTERFEIT DRUG ADMINISTERED [None]
  - DRUG LEVEL BELOW THERAPEUTIC [None]
  - POOR QUALITY DRUG ADMINISTERED [None]
